FAERS Safety Report 7725368-X (Version None)
Quarter: 2011Q3

REPORT INFORMATION
  Report Type: 
  Country: None (occurrence: None)
  Receive Date: 20110902
  Receipt Date: 20110818
  Transmission Date: 20111222
  Serious: Yes (Hospitalization, Disabling, Other)
  Sender: FDA-Public Use
  Company Number: GB-JNJFOC-20110809729

PATIENT
  Age: 67 Year
  Sex: Male
  Weight: 76 kg

DRUGS (7)
  1. SIMVASTATIN [Interacting]
     Indication: HYPERCHOLESTEROLAEMIA
     Dosage: START DATE: DEC-2010
     Route: 048
     Dates: start: 20101201
  2. RAMIPRIL [Concomitant]
     Dosage: START DATE: DEC-2010
     Route: 065
     Dates: start: 20101201
  3. ASPIRIN [Concomitant]
     Dosage: START DATE: DEC-2010
     Route: 065
     Dates: start: 20101201
  4. SPORANOX [Suspect]
     Indication: ONYCHOMYCOSIS
     Route: 048
     Dates: start: 20110705, end: 20110727
  5. BISOPROLOL FUMARATE [Concomitant]
     Dosage: START DATE: DEC-2010
     Route: 065
     Dates: start: 20101201
  6. FUROSEMIDE [Concomitant]
     Dosage: START DATE: DEC-2010
     Route: 065
     Dates: start: 20101201
  7. TAMSULOSIN HCL [Concomitant]
     Route: 065
     Dates: start: 20090101

REACTIONS (4)
  - BLOOD CREATINE PHOSPHOKINASE INCREASED [None]
  - MYALGIA [None]
  - DRUG INTERACTION [None]
  - MYOSITIS [None]
